FAERS Safety Report 9970503 (Version 2)
Quarter: 2014Q1

REPORT INFORMATION
  Report Type: Report from Study
  Country: US (occurrence: US)
  Receive Date: 20140306
  Receipt Date: 20140306
  Transmission Date: 20141002
  Serious: Yes (Hospitalization, Other)
  Sender: FDA-Public Use
  Company Number: US-ABBVIE-13P-163-1149000-00

PATIENT
  Sex: Female
  Weight: 67.19 kg

DRUGS (1)
  1. HUMIRA [Suspect]
     Indication: PSORIASIS

REACTIONS (11)
  - Skin cancer [Not Recovered/Not Resolved]
  - Pneumonia [Recovered/Resolved]
  - Skin cancer [Not Recovered/Not Resolved]
  - Rash papular [Not Recovered/Not Resolved]
  - Rash macular [Unknown]
  - Pyrexia [Recovered/Resolved]
  - Weight decreased [Unknown]
  - Psoriasis [Unknown]
  - Psoriasis [Not Recovered/Not Resolved]
  - Drug hypersensitivity [Unknown]
  - Rash morbilliform [Not Recovered/Not Resolved]
